FAERS Safety Report 17018035 (Version 1)
Quarter: 2019Q4

REPORT INFORMATION
  Report Type: Spontaneous
  Country: US (occurrence: US)
  Receive Date: 20191111
  Receipt Date: 20191111
  Transmission Date: 20200122
  Serious: Yes (Other)
  Sender: FDA-Public Use
  Company Number: US-TEVA-2019-US-1135161

PATIENT
  Age: 31 Year
  Sex: Female

DRUGS (2)
  1. PREDNISONE. [Suspect]
     Active Substance: PREDNISONE
     Indication: EOSINOPHILIC PNEUMONIA CHRONIC
     Dosage: 5-40 MG/DAY
     Route: 065
  2. MYCOPHENOLATE MOFETIL. [Suspect]
     Active Substance: MYCOPHENOLATE MOFETIL
     Indication: EOSINOPHILIC PNEUMONIA CHRONIC
     Dosage: 3000 MILLIGRAM DAILY;
     Route: 065

REACTIONS (3)
  - Therapy non-responder [Unknown]
  - Steroid diabetes [Unknown]
  - Cushing^s syndrome [Unknown]
